FAERS Safety Report 5824222-8 (Version None)
Quarter: 2008Q3

REPORT INFORMATION
  Report Type: 
  Country: None (occurrence: None)
  Receive Date: 20080718
  Receipt Date: 20080414
  Transmission Date: 20090109
  Serious: Yes (Other)
  Sender: FDA-Public Use
  Company Number: US-WYE-H03634808

PATIENT
  Age: 72 Year
  Sex: Female
  Weight: 54.48 kg

DRUGS (2)
  1. ADVIL PM [Suspect]
     Indication: INSOMNIA
     Dosage: 1 CAPLET DAILY AS NEEDED, ORAL
     Route: 048
     Dates: start: 20080401, end: 20080401
  2. ADVIL PM [Suspect]
     Indication: PAIN
     Dosage: 1 CAPLET DAILY AS NEEDED, ORAL
     Route: 048
     Dates: start: 20080401, end: 20080401

REACTIONS (2)
  - OESOPHAGEAL PAIN [None]
  - THROAT IRRITATION [None]
